FAERS Safety Report 7476327-6 (Version None)
Quarter: 2011Q2

REPORT INFORMATION
  Report Type: 
  Country: None (occurrence: None)
  Receive Date: 20110512
  Receipt Date: 20110504
  Transmission Date: 20111010
  Serious: Yes (Hospitalization)
  Sender: FDA-Public Use
  Company Number: US-WATSON-2011-06100

PATIENT
  Age: 41 Year
  Sex: Female
  Weight: 77.098 kg

DRUGS (2)
  1. FENTANYL-100 [Suspect]
     Dosage: 1 PATCH EVERY 72 HRS
     Route: 062
     Dates: start: 20080101
  2. FENTANYL-100 [Suspect]
     Indication: BACK PAIN
     Dosage: 1 PATCH EVERY 72 HRS
     Route: 062
     Dates: start: 20110501

REACTIONS (6)
  - ACCIDENTAL OVERDOSE [None]
  - RASH GENERALISED [None]
  - ACCIDENTAL EXPOSURE [None]
  - APPLICATION SITE BURN [None]
  - LETHARGY [None]
  - LOSS OF CONSCIOUSNESS [None]
